FAERS Safety Report 8358511-2 (Version None)
Quarter: 2012Q2

REPORT INFORMATION
  Report Type: 
  Country: None (occurrence: None)
  Receive Date: 20120514
  Receipt Date: 20120502
  Transmission Date: 20120825
  Serious: Yes (Death, Other)
  Sender: FDA-Public Use
  Company Number: US-ACTELION-A-US2012-64614

PATIENT

DRUGS (3)
  1. ADCIRCA [Concomitant]
  2. LETAIRIS [Concomitant]
  3. EPOPROSTENOL SODIUM [Suspect]
     Indication: PULMONARY ARTERIAL HYPERTENSION
     Dosage: 22 NG/KG, PER MIN
     Route: 055
     Dates: start: 20120123, end: 20120422

REACTIONS (6)
  - CARDIAC FAILURE [None]
  - PULMONARY HYPERTENSION [None]
  - RESPIRATORY FAILURE [None]
  - ASCITES [None]
  - THROMBOCYTOPENIA [None]
  - RENAL FAILURE ACUTE [None]
